FAERS Safety Report 23484367 (Version 1)
Quarter: 2024Q1

REPORT INFORMATION
  Report Type: Spontaneous
  Country: US (occurrence: US)
  Receive Date: 20240206
  Receipt Date: 20240206
  Transmission Date: 20240409
  Serious: Yes (Other)
  Sender: FDA-Public Use
  Company Number: US-SANDOZ-SDZ2024US011401

PATIENT
  Age: 15 Year
  Sex: Male
  Weight: 60.33 kg

DRUGS (1)
  1. TROPICAMIDE [Suspect]
     Active Substance: TROPICAMIDE
     Indication: Product used for unknown indication
     Dosage: 1 DROP (1/12 MILLILITRE) N/A DOSE EVERY N/A N/A
     Route: 047
     Dates: start: 20240122, end: 20240122

REACTIONS (4)
  - Seizure [Recovering/Resolving]
  - Syncope [Recovering/Resolving]
  - Abnormal sensation in eye [Recovering/Resolving]
  - Photosensitivity reaction [Recovering/Resolving]

NARRATIVE: CASE EVENT DATE: 20240122
